FAERS Safety Report 22195820 (Version 3)
Quarter: 2024Q2

REPORT INFORMATION
  Report Type: Spontaneous
  Country: US (occurrence: US)
  Receive Date: 20230411
  Receipt Date: 20240412
  Transmission Date: 20240716
  Serious: No
  Sender: FDA-Public Use
  Company Number: US-ASTELLAS-2022US022305

PATIENT
  Sex: Female
  Weight: 54.4 kg

DRUGS (3)
  1. TACROLIMUS [Interacting]
     Active Substance: TACROLIMUS
     Indication: Heart transplant
     Dosage: 0.5 MG, TWICE DAILY IN AM AND PM
     Route: 048
  2. SIROLIMUS [Interacting]
     Active Substance: SIROLIMUS
     Indication: Product used for unknown indication
     Dosage: UNK UNK, UNKNOWN FREQ.
     Route: 065
  3. PAXLOVID [Interacting]
     Active Substance: NIRMATRELVIR\RITONAVIR
     Indication: COVID-19
     Dosage: 3 DF, TWICE DAILY (FOR 5 DAYS, 2X150MG+1X100 MG)
     Route: 048
     Dates: start: 20220520, end: 20220523

REACTIONS (4)
  - Immunosuppressant drug level increased [Recovered/Resolved]
  - Pain [Recovered/Resolved]
  - Blood glucose increased [Recovered/Resolved]
  - Drug interaction [Recovered/Resolved]
